FAERS Safety Report 7278771-9 (Version None)
Quarter: 2011Q1

REPORT INFORMATION
  Report Type: 
  Country: None (occurrence: None)
  Receive Date: 20110207
  Receipt Date: 20110128
  Transmission Date: 20110831
  Serious: Yes (Hospitalization)
  Sender: FDA-Public Use
  Company Number: GB-BAXTER-2009BH018008

PATIENT
  Age: 66 Year
  Sex: Female

DRUGS (7)
  1. DOXORUBICIN GENERIC [Suspect]
     Indication: BREAST CANCER
     Route: 042
     Dates: start: 20090319
  2. FLUOROURACIL [Suspect]
     Indication: BREAST CANCER
     Route: 042
     Dates: start: 20090319
  3. CYCLOPHOSPHAMIDE [Suspect]
     Route: 042
     Dates: start: 20090319
  4. CYCLOPHOSPHAMIDE [Suspect]
     Indication: BREAST CANCER
     Route: 042
     Dates: start: 20090323
  5. DOXORUBICIN GENERIC [Suspect]
     Route: 042
  6. NEULASTA [Suspect]
     Indication: PRODUCT USED FOR UNKNOWN INDICATION
     Route: 058
     Dates: start: 20090324, end: 20090324
  7. NEULASTA [Suspect]
     Route: 058
     Dates: start: 20090324, end: 20090324

REACTIONS (4)
  - NERVOUSNESS [None]
  - FEBRILE NEUTROPENIA [None]
  - NEUTROPHIL COUNT DECREASED [None]
  - MALAISE [None]
